FAERS Safety Report 8911499 (Version 2)
Quarter: 2012Q4

REPORT INFORMATION
  Report Type: Report from Study
  Country: DE (occurrence: DE)
  Receive Date: 20121115
  Receipt Date: 20121210
  Transmission Date: 20130627
  Serious: Yes (Hospitalization)
  Sender: FDA-Public Use
  Company Number: DE-NOVOPROD-363682

PATIENT
  Age: 12 Year
  Sex: Female
  Weight: 71 kg

DRUGS (5)
  1. NORDITROPIN SIMPLEXX [Suspect]
     Indication: HYPOPITUITARISM
     Dosage: 1.2 mg, qd
     Route: 058
     Dates: start: 20120420
  2. NORDITROPIN SIMPLEXX [Suspect]
     Indication: GROWTH HORMONE DEFICIENCY
     Dosage: UNK
     Route: 058
  3. CETRIZINE [Concomitant]
     Indication: SEASONAL ALLERGY
     Dosage: 10 mg, qd
     Route: 048
     Dates: start: 20120423, end: 20120424
  4. L-THYROXIN [Concomitant]
     Indication: HYPOPITUITARISM
     Dosage: 100 ?g, qd
     Route: 048
     Dates: start: 2005
  5. MINIRIN                            /00361901/ [Concomitant]
     Indication: DIABETES INSIPIDUS
     Dosage: 1.2 mg, qd
     Route: 048
     Dates: start: 2005

REACTIONS (6)
  - Malaise [Recovered/Resolved]
  - Body temperature fluctuation [Recovered/Resolved]
  - Face oedema [Recovered/Resolved]
  - Bone pain [Recovered/Resolved]
  - Headache [Recovered/Resolved]
  - Oedema peripheral [Recovered/Resolved]
